FAERS Safety Report 21363701 (Version 1)
Quarter: 2022Q3

REPORT INFORMATION
  Report Type: Spontaneous
  Country: US (occurrence: None)
  Receive Date: 20220921
  Receipt Date: 20220921
  Transmission Date: 20221026
  Serious: Yes (Other)
  Sender: FDA-Public Use
  Company Number: None

PATIENT
  Age: 60 Year
  Sex: Female

DRUGS (18)
  1. DALFAMPRIDINE [Suspect]
     Active Substance: DALFAMPRIDINE
  2. ASPIRIN LOW TAB [Concomitant]
  3. ATORVASTATIN [Concomitant]
     Active Substance: ATORVASTATIN
  4. DALFAMPRIDIN TAB [Concomitant]
  5. EUTHYROX TAB [Concomitant]
  6. GABAPENTIN [Concomitant]
     Active Substance: GABAPENTIN
  7. HYDROCHLOROT CAP [Concomitant]
  8. KENALOG [Concomitant]
     Active Substance: TRIAMCINOLONE ACETONIDE
  9. KESIMPTA [Concomitant]
     Active Substance: OFATUMUMAB
  10. MELOXICAM TAB [Concomitant]
  11. NOVOLOG INJ FLEXPEN [Concomitant]
  12. OMEPRAZOLE TAB [Concomitant]
  13. OXYBUTYNIN TAB [Concomitant]
  14. OXYCODONE TAB [Concomitant]
  15. POT CHLORIDE TAB [Concomitant]
  16. SOLU-MEDROL INJ [Concomitant]
  17. TYLENOL TAB [Concomitant]
  18. VITAMIN D3 CAP [Concomitant]

REACTIONS (1)
  - Neuropathy peripheral [None]

NARRATIVE: CASE EVENT DATE: 20220906
